FAERS Safety Report 5250981-1 (Version None)
Quarter: 2007Q1

REPORT INFORMATION
  Report Type: 
  Country: None (occurrence: None)
  Receive Date: 20070228
  Receipt Date: 20060817
  Transmission Date: 20070707
  Serious: No
  Sender: FDA-Public Use
  Company Number: US-GLAXOSMITHKLINE-A0615083A

PATIENT
  Age: 54 Year
  Sex: Female

DRUGS (3)
  1. LAMICTAL [Suspect]
     Indication: DRUG USE FOR UNKNOWN INDICATION
     Dosage: 50MG PER DAY
     Route: 048
     Dates: start: 20060627
  2. ZOLOFT [Concomitant]
     Dosage: 100MG TWICE PER DAY
     Route: 048
  3. ZETIA [Concomitant]

REACTIONS (1)
  - RASH [None]
